FAERS Safety Report 24969853 (Version 7)
Quarter: 2025Q2

REPORT INFORMATION
  Report Type: Spontaneous
  Country: US (occurrence: US)
  Receive Date: 20250214
  Receipt Date: 20250514
  Transmission Date: 20250716
  Serious: No
  Sender: CSL BEHRING
  Company Number: US-BEH-2025195466

PATIENT
  Age: 33 Year
  Sex: Male

DRUGS (2)
  1. HEMGENIX [Suspect]
     Active Substance: ETRANACOGENE DEZAPARVOVEC
     Indication: Factor IX deficiency
     Route: 065
     Dates: start: 20250206
  2. HEMGENIX [Suspect]
     Active Substance: ETRANACOGENE DEZAPARVOVEC
     Route: 042
     Dates: start: 20250206

REACTIONS (10)
  - Respiratory tract infection viral [Unknown]
  - Headache [Recovered/Resolved]
  - Influenza like illness [Unknown]
  - Chills [Unknown]
  - Paranasal sinus discomfort [Unknown]
  - Hepatic enzyme increased [Unknown]
  - Nausea [Recovered/Resolved]
  - Fatigue [Recovered/Resolved]
  - Headache [Unknown]
  - Hepatic enzyme increased [Unknown]

NARRATIVE: CASE EVENT DATE: 20250201
